FAERS Safety Report 9372971 (Version 2)
Quarter: 2013Q3

REPORT INFORMATION
  Report Type: Spontaneous
  Country: US (occurrence: US)
  Receive Date: 20130627
  Receipt Date: 20130806
  Transmission Date: 20140515
  Serious: No
  Sender: FDA-Public Use
  Company Number: US-PFIZER INC-2013187676

PATIENT
  Age: 28 Year
  Sex: Female
  Weight: 58.96 kg

DRUGS (1)
  1. CLINDAMYCIN PHOSPHATE [Suspect]
     Dosage: UNK, 1X/DAY
     Route: 061
     Dates: start: 201212

REACTIONS (2)
  - Poor quality drug administered [Unknown]
  - Product odour abnormal [Unknown]
